FAERS Safety Report 9171747 (Version 4)
Quarter: 2013Q2

REPORT INFORMATION
  Report Type: Spontaneous
  Country: JP (occurrence: JP)
  Receive Date: 20130319
  Receipt Date: 20130506
  Transmission Date: 20140414
  Serious: Yes (Other)
  Sender: FDA-Public Use
  Company Number: PHHY2013JP025472

PATIENT
  Age: 53 Year
  Sex: Female

DRUGS (4)
  1. NILOTINIB [Suspect]
     Indication: CHRONIC MYELOID LEUKAEMIA
     Route: 048
  2. IMATINIB [Suspect]
     Indication: CHRONIC MYELOID LEUKAEMIA
  3. DASATINIB [Suspect]
  4. DASATINIB [Suspect]
     Dosage: 140 MG/DAY
     Route: 048

REACTIONS (5)
  - Haematotoxicity [Unknown]
  - Chronic myeloid leukaemia transformation [Unknown]
  - Blast crisis in myelogenous leukaemia [Unknown]
  - Pyrexia [Unknown]
  - Drug intolerance [Unknown]
